FAERS Safety Report 9168892 (Version 2)
Quarter: 2013Q2

REPORT INFORMATION
  Report Type: Spontaneous
  Country: CN (occurrence: CN)
  Receive Date: 20130318
  Receipt Date: 20130403
  Transmission Date: 20140414
  Serious: Yes (Life-Threatening, Hospitalization)
  Sender: FDA-Public Use
  Company Number: CN-ROCHE-1187762

PATIENT
  Age: 30 Year
  Sex: Female

DRUGS (1)
  1. ROCEPHIN [Suspect]
     Indication: PYELONEPHRITIS
     Route: 041
     Dates: start: 20130203, end: 20130203

REACTIONS (3)
  - Syncope [Recovered/Resolved]
  - Generalised oedema [Recovered/Resolved]
  - Pruritus [Recovered/Resolved]
